FAERS Safety Report 24939388 (Version 2)
Quarter: 2025Q1

REPORT INFORMATION
  Report Type: Spontaneous
  Country: US (occurrence: US)
  Receive Date: 20250206
  Receipt Date: 20250224
  Transmission Date: 20250409
  Serious: No
  Sender: PIRAMAL
  Company Number: US-PCCINC-2025-PPL-000065

PATIENT

DRUGS (1)
  1. GABLOFEN [Suspect]
     Active Substance: BACLOFEN
     Indication: Product used for unknown indication
     Route: 037

REACTIONS (1)
  - Drug ineffective [Recovered/Resolved]
